FAERS Safety Report 18108939 (Version 7)
Quarter: 2024Q1

REPORT INFORMATION
  Report Type: Spontaneous
  Country: US (occurrence: US)
  Receive Date: 20200804
  Receipt Date: 20240322
  Transmission Date: 20240409
  Serious: Yes (Disabling, Other)
  Sender: FDA-Public Use
  Company Number: US-PFIZER INC-2020291193

PATIENT
  Age: 92 Year
  Sex: Male
  Weight: 74.83 kg

DRUGS (5)
  1. VYNDAMAX [Suspect]
     Active Substance: TAFAMIDIS
     Indication: Amyloidosis
     Dosage: 61 MG
     Dates: end: 20221213
  2. VYNDAMAX [Suspect]
     Active Substance: TAFAMIDIS
     Dosage: 61 MG, 1X/DAY
  3. VYNDAMAX [Suspect]
     Active Substance: TAFAMIDIS
     Dosage: 61MG AND TAKES IT ONCE A DAY IN THE MORNING BY MOUTH
     Route: 048
  4. COUMADIN [Concomitant]
     Active Substance: WARFARIN SODIUM
     Dosage: UNK
  5. ARICEPT [Concomitant]
     Active Substance: DONEPEZIL HYDROCHLORIDE
     Dosage: 5MG AND THE PATIENT TAKES IT ONCE DAY IN THE MORNINGS
     Dates: start: 202403

REACTIONS (6)
  - Road traffic accident [Recovering/Resolving]
  - Hip fracture [Unknown]
  - Concussion [Recovering/Resolving]
  - Fatigue [Unknown]
  - Speech disorder [Unknown]
  - Memory impairment [Unknown]

NARRATIVE: CASE EVENT DATE: 20221105
